FAERS Safety Report 22261423 (Version 1)
Quarter: 2023Q2

REPORT INFORMATION
  Report Type: Spontaneous
  Country: US (occurrence: None)
  Receive Date: 20230427
  Receipt Date: 20230427
  Transmission Date: 20230722
  Serious: No
  Sender: FDA-Public Use
  Company Number: 2023A087267

PATIENT
  Sex: Female

DRUGS (1)
  1. LYNPARZA [Suspect]
     Active Substance: OLAPARIB
     Indication: Ovarian cancer recurrent
     Route: 048
     Dates: start: 202106

REACTIONS (10)
  - Feeling abnormal [Unknown]
  - Parathyroid disorder [Unknown]
  - Parathyroid gland enlargement [Unknown]
  - Depression [Unknown]
  - Crying [Unknown]
  - Flat affect [Unknown]
  - Anxiety [Unknown]
  - Nausea [Recovered/Resolved]
  - Fatigue [Unknown]
  - Diarrhoea [Unknown]
